FAERS Safety Report 5709706-5 (Version None)
Quarter: 2008Q2

REPORT INFORMATION
  Report Type: 
  Country: None (occurrence: None)
  Receive Date: 20080418
  Receipt Date: 20080407
  Transmission Date: 20081010
  Serious: Yes (Hospitalization)
  Sender: FDA-Public Use
  Company Number: IT-AMGEN-US273599

PATIENT
  Sex: Female

DRUGS (4)
  1. ENBREL [Suspect]
     Indication: RHEUMATOID ARTHRITIS
     Route: 058
     Dates: start: 20060320, end: 20070924
  2. METHOTREXATE [Suspect]
     Indication: RHEUMATOID ARTHRITIS
     Route: 030
     Dates: start: 20040101, end: 20070924
  3. CELEBREX [Concomitant]
     Dosage: 200 MG
     Route: 048
  4. MEDROL [Concomitant]
     Dosage: 4 MG
     Route: 048

REACTIONS (4)
  - COLON NEOPLASM [None]
  - METASTASES TO LIVER [None]
  - PERITONEAL CARCINOMA [None]
  - PYREXIA [None]
